FAERS Safety Report 23741674 (Version 1)
Quarter: 2024Q2

REPORT INFORMATION
  Report Type: Spontaneous
  Country: US (occurrence: US)
  Receive Date: 20240415
  Receipt Date: 20240415
  Transmission Date: 20240716
  Serious: No
  Sender: FDA-Public Use
  Company Number: US-ASTELLAS-2023US016151

PATIENT
  Age: 54 Year
  Sex: Female

DRUGS (16)
  1. LEXISCAN [Suspect]
     Active Substance: REGADENOSON
     Indication: Chest pain
     Dosage: UNK UNK, UNKNOWN FREQ.(0.4 MG/5ML)
     Route: 065
     Dates: start: 20230505, end: 20230505
  2. LEXISCAN [Suspect]
     Active Substance: REGADENOSON
     Indication: Chest pain
     Dosage: UNK UNK, UNKNOWN FREQ.(0.4 MG/5ML)
     Route: 065
     Dates: start: 20230505, end: 20230505
  3. LEXISCAN [Suspect]
     Active Substance: REGADENOSON
     Indication: Chest pain
     Dosage: UNK UNK, UNKNOWN FREQ.(0.4 MG/5ML)
     Route: 065
     Dates: start: 20230505, end: 20230505
  4. LEXISCAN [Suspect]
     Active Substance: REGADENOSON
     Indication: Chest pain
     Dosage: UNK UNK, UNKNOWN FREQ.(0.4 MG/5ML)
     Route: 065
     Dates: start: 20230505, end: 20230505
  5. LEXISCAN [Suspect]
     Active Substance: REGADENOSON
     Indication: Hypertension
  6. LEXISCAN [Suspect]
     Active Substance: REGADENOSON
     Indication: Hypertension
  7. LEXISCAN [Suspect]
     Active Substance: REGADENOSON
     Indication: Hypertension
  8. LEXISCAN [Suspect]
     Active Substance: REGADENOSON
     Indication: Hypertension
  9. LEXISCAN [Suspect]
     Active Substance: REGADENOSON
     Indication: Fatigue
  10. LEXISCAN [Suspect]
     Active Substance: REGADENOSON
     Indication: Fatigue
  11. LEXISCAN [Suspect]
     Active Substance: REGADENOSON
     Indication: Fatigue
  12. LEXISCAN [Suspect]
     Active Substance: REGADENOSON
     Indication: Fatigue
  13. SYNTHROID [Concomitant]
     Active Substance: LEVOTHYROXINE SODIUM
     Indication: Product used for unknown indication
     Dosage: UNK UNK, UNKNOWN FREQ.
     Route: 065
  14. METOPROLOL [Concomitant]
     Active Substance: METOPROLOL
     Indication: Product used for unknown indication
     Dosage: UNK UNK, UNKNOWN FREQ.
     Route: 065
  15. LOSARTAN [Concomitant]
     Active Substance: LOSARTAN
     Indication: Product used for unknown indication
     Dosage: UNK UNK, UNKNOWN FREQ.
     Route: 065
  16. WELLBUTRIN [Concomitant]
     Active Substance: BUPROPION HYDROCHLORIDE
     Indication: Product used for unknown indication
     Dosage: UNK UNK, UNKNOWN FREQ.
     Route: 065

REACTIONS (3)
  - Vomiting [Unknown]
  - Blood pressure decreased [Unknown]
  - Off label use [Unknown]

NARRATIVE: CASE EVENT DATE: 20230505
